FAERS Safety Report 18362165 (Version 8)
Quarter: 2021Q3

REPORT INFORMATION
  Report Type: Report from Study
  Country: KR (occurrence: KR)
  Receive Date: 20201009
  Receipt Date: 20210824
  Transmission Date: 20211014
  Serious: Yes (Death, Hospitalization)
  Sender: FDA-Public Use
  Company Number: KR-ROCHE-2689466

PATIENT
  Age: 67 Year
  Sex: Male
  Weight: 50 kg

DRUGS (39)
  1. NUCYNTA [Concomitant]
     Active Substance: TAPENTADOL HYDROCHLORIDE
     Indication: BACK PAIN
     Route: 048
     Dates: start: 20200817, end: 20201001
  2. NEUSTATIN A [Concomitant]
     Route: 048
     Dates: start: 20201001, end: 20201001
  3. AIRTAL [Concomitant]
     Active Substance: ACECLOFENAC
     Indication: BACK PAIN
     Route: 048
     Dates: start: 20200910, end: 20201001
  4. IBU [Concomitant]
     Active Substance: IBUPROFEN
     Route: 048
     Dates: start: 20200909
  5. SODIUM BICARBONATE. [Concomitant]
     Active Substance: SODIUM BICARBONATE
     Dosage: 160 OTHER
     Route: 042
     Dates: start: 20201003, end: 20201003
  6. NORPINE [Concomitant]
     Route: 042
     Dates: start: 20201002, end: 20201003
  7. PLACEBO [Suspect]
     Active Substance: UNSPECIFIED INGREDIENT
     Indication: NON-SMALL CELL LUNG CANCER
     Dosage: ON SAME DAY, HE RECEIVED MOST RECENT DOSE OF PLACEBO PRIOR TO ADVERSE EVENT (AE)/SERIOUS ADVERSE EVE
     Route: 042
     Dates: start: 20200918
  8. ETOMIDATE LIPURO [Concomitant]
     Active Substance: ETOMIDATE
     Indication: CONFUSIONAL STATE
     Route: 042
     Dates: start: 20201001, end: 20201001
  9. ETOMIDATE LIPURO [Concomitant]
     Active Substance: ETOMIDATE
     Route: 042
     Dates: start: 20201001, end: 20201001
  10. LASIX [Concomitant]
     Active Substance: FUROSEMIDE
     Route: 042
     Dates: start: 20201002, end: 20201002
  11. SODIUM BICARBONATE. [Concomitant]
     Active Substance: SODIUM BICARBONATE
     Indication: ACIDOSIS
     Dosage: 80 OTHER
     Route: 042
     Dates: start: 20201002, end: 20201002
  12. FENTANYL. [Concomitant]
     Active Substance: FENTANYL
     Route: 042
     Dates: start: 20201002, end: 20201002
  13. LAMINA?G [Concomitant]
     Route: 048
     Dates: start: 20201002, end: 20201003
  14. VASOPRESSIN. [Concomitant]
     Active Substance: VASOPRESSIN
     Route: 042
     Dates: start: 20201002, end: 20201003
  15. NEXIUM [Concomitant]
     Active Substance: ESOMEPRAZOLE MAGNESIUM
     Indication: PYREXIA
     Route: 042
     Dates: start: 20201002, end: 20201002
  16. HUMULIN R [Concomitant]
     Active Substance: INSULIN HUMAN
     Route: 042
     Dates: start: 20201003, end: 20201003
  17. ULTIAN [Concomitant]
     Route: 042
     Dates: start: 20201002, end: 20201003
  18. LASIX [Concomitant]
     Active Substance: FUROSEMIDE
     Route: 042
     Dates: start: 20201003, end: 20201003
  19. PANTOLOC [Concomitant]
     Active Substance: PANTOPRAZOLE SODIUM
     Route: 042
     Dates: start: 20201002, end: 20201003
  20. NORPINE [Concomitant]
     Indication: CARDIAC ARREST
     Route: 042
     Dates: start: 20201002, end: 20201003
  21. VASOPRESSIN. [Concomitant]
     Active Substance: VASOPRESSIN
     Indication: CARDIAC ARREST
     Route: 042
     Dates: start: 20201002, end: 20201002
  22. HUMULIN R [Concomitant]
     Active Substance: INSULIN HUMAN
     Indication: HYPERGLYCAEMIA
     Route: 042
     Dates: start: 20201003, end: 20201003
  23. PROFA [Concomitant]
     Indication: PYREXIA
     Route: 042
     Dates: start: 20201003, end: 20201003
  24. NUCYNTA ER [Concomitant]
     Active Substance: TAPENTADOL HYDROCHLORIDE
     Indication: BACK PAIN
     Route: 048
     Dates: start: 20200817, end: 20201001
  25. SENSIVAL [Concomitant]
     Route: 048
     Dates: start: 20200917
  26. TYLENOL ER [Concomitant]
     Active Substance: ACETAMINOPHEN
     Route: 048
     Dates: start: 20200918, end: 20201001
  27. ROBADIPIN [Concomitant]
     Indication: HYPERTENSION
     Route: 048
     Dates: start: 20201001, end: 20201001
  28. SODIUM BICARBONATE. [Concomitant]
     Active Substance: SODIUM BICARBONATE
     Dosage: 120 OTHER
     Route: 042
     Dates: start: 20201003, end: 20201003
  29. FRESOFOL [Concomitant]
     Route: 042
     Dates: start: 20201002, end: 20201003
  30. SUTILEN 2X [Concomitant]
     Route: 048
     Dates: end: 20201001
  31. MIDAZOLAM. [Concomitant]
     Active Substance: MIDAZOLAM
     Indication: CONFUSIONAL STATE
     Route: 042
     Dates: start: 20201001, end: 20201001
  32. LASIX [Concomitant]
     Active Substance: FUROSEMIDE
     Indication: URINE OUTPUT DECREASED
     Route: 042
     Dates: start: 20201001, end: 20201003
  33. EPINEPHRINE. [Concomitant]
     Active Substance: EPINEPHRINE
     Indication: CARDIAC ARREST
     Route: 042
     Dates: start: 20201002, end: 20201002
  34. HEPARIN [Concomitant]
     Active Substance: HEPARIN SODIUM
     Route: 058
     Dates: start: 20201002, end: 20201003
  35. CALCIUM GLUCONATE. [Concomitant]
     Active Substance: CALCIUM GLUCONATE
     Indication: HYPOCALCAEMIA
     Route: 042
     Dates: start: 20201003, end: 20201003
  36. ATEZOLIZUMAB. [Suspect]
     Active Substance: ATEZOLIZUMAB
     Indication: NON-SMALL CELL LUNG CANCER
     Dosage: ON SAME DAY, HE RECEIVED MOST RECENT DOSE OF IV ATEZOLIZUMAB 1200 MG PRIOR TO AE/SAE ONSET.
     Route: 041
     Dates: start: 20200918
  37. SUCCINYLCHOLINE [Concomitant]
     Active Substance: SUCCINYLCHOLINE
     Route: 042
     Dates: start: 20201001, end: 20201001
  38. SODIUM BICARBONATE. [Concomitant]
     Active Substance: SODIUM BICARBONATE
     Dosage: 40 OTHER
     Route: 042
     Dates: start: 20201002, end: 20201002
  39. DENOGAN [Concomitant]
     Active Substance: PROPACETAMOL HYDROCHLORIDE
     Indication: PYREXIA
     Route: 042
     Dates: start: 20201002, end: 20201002

REACTIONS (1)
  - Immune-mediated encephalitis [Fatal]

NARRATIVE: CASE EVENT DATE: 20201001
